FAERS Safety Report 17420044 (Version 1)
Quarter: 2020Q1

REPORT INFORMATION
  Report Type: Spontaneous
  Country: US (occurrence: US)
  Receive Date: 20200214
  Receipt Date: 20200214
  Transmission Date: 20200409
  Serious: Yes (Life-Threatening, Hospitalization, Other)
  Sender: FDA-Public Use
  Company Number: US-GLAXOSMITHKLINE-US2020024276

PATIENT
  Age: 49 Year
  Sex: Female

DRUGS (2)
  1. BENLYSTA [Suspect]
     Active Substance: BELIMUMAB
     Indication: PRODUCT USED FOR UNKNOWN INDICATION
     Dosage: 200 MG, WE
     Route: 065
     Dates: start: 2019
  2. BENLYSTA [Suspect]
     Active Substance: BELIMUMAB
     Dosage: 100 MG, Z, ADMINISTERING HALF A DOSE EVERY 3 DAYS
     Route: 065
     Dates: start: 201909

REACTIONS (7)
  - Hypotension [Unknown]
  - Product storage error [Unknown]
  - Dyspnoea [Unknown]
  - Anaphylactic reaction [Unknown]
  - Inappropriate schedule of product administration [Unknown]
  - Contraindicated product administered [Unknown]
  - Rash [Unknown]

NARRATIVE: CASE EVENT DATE: 20190918
